FAERS Safety Report 7600758-4 (Version None)
Quarter: 2011Q3

REPORT INFORMATION
  Report Type: 
  Country: None (occurrence: None)
  Receive Date: 20110711
  Receipt Date: 20110704
  Transmission Date: 20111222
  Serious: Yes (Death, Hospitalization, Disabling, Other)
  Sender: FDA-Public Use
  Company Number: IT-BAYER-200943351GPV

PATIENT
  Age: 74 Year
  Sex: Male
  Weight: 75 kg

DRUGS (4)
  1. SORAFENIB (RAF KINASE INHIBITOR) [Suspect]
     Indication: HEPATIC NEOPLASM MALIGNANT
     Route: 048
     Dates: start: 20091204, end: 20091217
  2. DOXORUBICIN HCL [Suspect]
     Indication: HEPATIC NEOPLASM MALIGNANT
  3. SORAFENIB (RAF KINASE INHIBITOR) [Suspect]
     Route: 048
     Dates: start: 20091217, end: 20091222
  4. UNKNOWN DRUG [Concomitant]
     Indication: BENIGN PROSTATIC HYPERPLASIA
     Dosage: 320 MG (DAILY DOSE), , ORAL
     Route: 048
     Dates: start: 20090923

REACTIONS (4)
  - CHRONIC HEPATIC FAILURE [None]
  - HEPATIC FUNCTION ABNORMAL [None]
  - ASCITES [None]
  - HYPERBILIRUBINAEMIA [None]
